FAERS Safety Report 14015506 (Version 1)
Quarter: 2017Q3

REPORT INFORMATION
  Report Type: Spontaneous
  Country: CN (occurrence: CN)
  Receive Date: 20170927
  Receipt Date: 20170927
  Transmission Date: 20171128
  Serious: Yes (Other)
  Sender: FDA-Public Use
  Company Number: CN-JNJFOC-20170920134

PATIENT
  Age: 69 Year
  Sex: Male
  Weight: 61 kg

DRUGS (6)
  1. SPORANOX [Suspect]
     Active Substance: ITRACONAZOLE
     Indication: PULMONARY MYCOSIS
     Route: 048
     Dates: start: 20170204, end: 20170206
  2. SPORANOX [Suspect]
     Active Substance: ITRACONAZOLE
     Indication: LUNG INFECTION
     Route: 048
     Dates: start: 20170204, end: 20170206
  3. SPORANOX [Suspect]
     Active Substance: ITRACONAZOLE
     Indication: PULMONARY MYCOSIS
     Route: 048
     Dates: start: 20170206, end: 20170208
  4. SPORANOX [Suspect]
     Active Substance: ITRACONAZOLE
     Indication: LUNG INFECTION
     Route: 048
     Dates: start: 20170206, end: 20170208
  5. CILASTATIN SODIUM [Concomitant]
     Active Substance: CILASTATIN SODIUM
     Indication: LUNG INFECTION
     Route: 041
     Dates: start: 20170127, end: 20170210
  6. IMIPENEM [Concomitant]
     Active Substance: IMIPENEM
     Indication: LUNG INFECTION
     Route: 041
     Dates: start: 20170127, end: 20170210

REACTIONS (7)
  - Foaming at mouth [Recovering/Resolving]
  - Confusional state [Recovering/Resolving]
  - Muscle spasms [Recovering/Resolving]
  - Vomiting [Recovering/Resolving]
  - Diarrhoea [Recovering/Resolving]
  - Lacunar infarction [Unknown]
  - Nausea [Recovering/Resolving]

NARRATIVE: CASE EVENT DATE: 20170208
